FAERS Safety Report 23153008 (Version 1)
Quarter: 2023Q4

REPORT INFORMATION
  Report Type: Spontaneous
  Country: None (occurrence: US)
  Receive Date: 20231107
  Receipt Date: 20231107
  Transmission Date: 20240110
  Serious: Yes (Hospitalization, Other)
  Sender: FDA-Public Use
  Company Number: US-Ascend Therapeutics US, LLC-2147870

PATIENT
  Age: 34 Year
  Sex: Female

DRUGS (7)
  1. ANDROGEL [Suspect]
     Active Substance: TESTOSTERONE
     Indication: Anxiety
     Route: 062
     Dates: start: 2022
  2. TESTOSTERONE [Suspect]
     Active Substance: TESTOSTERONE
     Route: 062
     Dates: start: 2022
  3. TESTOSTERONE [Suspect]
     Active Substance: TESTOSTERONE
     Route: 030
     Dates: start: 201602, end: 2021
  4. TESTOSTERONE [Suspect]
     Active Substance: TESTOSTERONE
     Route: 058
     Dates: start: 202102, end: 2022
  5. TESTOSTERONE [Suspect]
     Active Substance: TESTOSTERONE
     Route: 058
     Dates: start: 202301, end: 202303
  6. BUSPIRONE [Concomitant]
     Active Substance: BUSPIRONE HYDROCHLORIDE
     Route: 065
  7. ESCITALOPRAM [Concomitant]
     Active Substance: ESCITALOPRAM OXALATE
     Route: 065

REACTIONS (3)
  - Ovarian granulosa cell tumour [Recovering/Resolving]
  - Condition aggravated [Recovering/Resolving]
  - Off label use [None]

NARRATIVE: CASE EVENT DATE: 20220101
